FAERS Safety Report 7675091-5 (Version None)
Quarter: 2011Q3

REPORT INFORMATION
  Report Type: 
  Country: None (occurrence: None)
  Receive Date: 20110810
  Receipt Date: 20110802
  Transmission Date: 20111222
  Serious: Yes (Hospitalization, Disabling, Other)
  Sender: FDA-Public Use
  Company Number: US-MERCK-1105USA01972

PATIENT
  Age: 66 Year
  Sex: Female
  Weight: 77 kg

DRUGS (10)
  1. ALENDRONATE SODIUM [Suspect]
     Indication: OSTEOPOROSIS
     Route: 048
     Dates: start: 20090917, end: 20091229
  2. ALENDRONATE SODIUM [Suspect]
     Route: 048
     Dates: start: 20100308
  3. FOSAMAX [Suspect]
     Route: 048
     Dates: start: 20080301, end: 20080808
  4. ALENDRONATE SODIUM [Suspect]
     Route: 048
     Dates: start: 20080903, end: 20090501
  5. FOSAMAX [Suspect]
     Indication: OSTEOPOROSIS
     Route: 048
     Dates: start: 19980101, end: 20100301
  6. FOSAMAX [Suspect]
     Route: 048
     Dates: start: 19980101, end: 20100301
  7. VITAMINS (UNSPECIFIED) [Concomitant]
     Route: 065
  8. FOSAMAX [Suspect]
     Indication: OSTEOPENIA
     Route: 048
     Dates: start: 19980101, end: 20100301
  9. ALENDRONATE SODIUM [Suspect]
     Indication: OSTEOPENIA
     Route: 048
     Dates: start: 20090917, end: 20091229
  10. FOSAMAX [Suspect]
     Route: 048
     Dates: start: 19980101, end: 20100301

REACTIONS (39)
  - HYPONATRAEMIA [None]
  - LOW TURNOVER OSTEOPATHY [None]
  - ULCER [None]
  - OVERDOSE [None]
  - FRACTURE DELAYED UNION [None]
  - ANAEMIA [None]
  - FOOT DEFORMITY [None]
  - BURSITIS [None]
  - NEPHROPATHY [None]
  - FRACTURE NONUNION [None]
  - LARYNGITIS [None]
  - MUSCULOSKELETAL DISCOMFORT [None]
  - CALCIUM DEFICIENCY [None]
  - TIBIA FRACTURE [None]
  - SLEEP DISORDER [None]
  - OSTEOARTHRITIS [None]
  - FALL [None]
  - TRANSIENT ISCHAEMIC ATTACK [None]
  - HYPERCHOLESTEROLAEMIA [None]
  - HIP DEFORMITY [None]
  - EXCORIATION [None]
  - ARTHRITIS [None]
  - ARTHROPATHY [None]
  - RENAL FAILURE [None]
  - ARTHRALGIA [None]
  - THROMBOSIS [None]
  - OSTEOPOROSIS [None]
  - INTERVERTEBRAL DISC DEGENERATION [None]
  - LEUKOCYTOSIS [None]
  - HAEMORRHAGIC ANAEMIA [None]
  - VITAMIN D DEFICIENCY [None]
  - FEMUR FRACTURE [None]
  - ANAEMIA POSTOPERATIVE [None]
  - STRESS FRACTURE [None]
  - RIB FRACTURE [None]
  - POST PROCEDURAL CONSTIPATION [None]
  - INTERNATIONAL NORMALISED RATIO INCREASED [None]
  - CONTUSION [None]
  - COLITIS ISCHAEMIC [None]
